FAERS Safety Report 20960243 (Version 1)
Quarter: 2022Q2

REPORT INFORMATION
  Report Type: Spontaneous
  Country: US (occurrence: US)
  Receive Date: 20220615
  Receipt Date: 20220615
  Transmission Date: 20220721
  Serious: Yes (Other)
  Sender: FDA-Public Use
  Company Number: US-SA-SAC20220613000414

PATIENT
  Age: 45 Year
  Sex: Male

DRUGS (1)
  1. ZANTAC [Suspect]
     Active Substance: RANITIDINE HYDROCHLORIDE
     Indication: Dyspepsia
     Dosage: OTHER, QD
     Route: 065
     Dates: start: 200001, end: 201812

REACTIONS (5)
  - Bladder cancer stage IV [Unknown]
  - Renal cancer [Unknown]
  - Testis cancer [Unknown]
  - Lymphoma [Unknown]
  - Neoplasm [Unknown]

NARRATIVE: CASE EVENT DATE: 20020101
